FAERS Safety Report 16190449 (Version 1)
Quarter: 2019Q2

REPORT INFORMATION
  Report Type: Spontaneous
  Country: US (occurrence: US)
  Receive Date: 20190308
  Receipt Date: 20190308
  Transmission Date: 20190711
  Serious: Yes (Hospitalization)
  Sender: FDA-Public Use
  Company Number: None

PATIENT
  Age: 31 Month
  Sex: Male

DRUGS (1)
  1. ALPHANATE [Suspect]
     Active Substance: HUMAN COAGULATION FACTOR VIII/VON WILLEBRAND FACTOR COMPLEX
     Indication: ACQUIRED HAEMOPHILIA
     Route: 042
     Dates: start: 20160503, end: 20181218

REACTIONS (3)
  - Epistaxis [None]
  - Injury [None]
  - Mouth haemorrhage [None]

NARRATIVE: CASE EVENT DATE: 201812
